FAERS Safety Report 7608744-5 (Version None)
Quarter: 2011Q3

REPORT INFORMATION
  Report Type: 
  Country: None (occurrence: None)
  Receive Date: 20110714
  Receipt Date: 20110714
  Transmission Date: 20111222
  Serious: Yes (Life-Threatening, Hospitalization)
  Sender: FDA-Public Use
  Company Number: None

PATIENT
  Age: 55 Year
  Sex: Female
  Weight: 54 kg

DRUGS (10)
  1. MAGNESIUM [Interacting]
  2. PSYLIUM [Interacting]
  3. POTASSIUM [Interacting]
     Indication: PRODUCT USED FOR UNKNOWN INDICATION
  4. PROTONIX [Interacting]
  5. ERTAPENEM [Interacting]
  6. ALVIMOPAN -ENTEREG- [Suspect]
     Indication: GASTROINTESTINAL DISORDER
     Dosage: 12MG
     Route: 048
     Dates: start: 20110711, end: 20110713
  7. FENTANYL [Interacting]
  8. MIRALAX [Interacting]
  9. ONDANSETRON [Interacting]
  10. HYDROMORPHONE HCL [Interacting]

REACTIONS (1)
  - MYOCARDIAL INFARCTION [None]
